FAERS Safety Report 7276400-1 (Version None)
Quarter: 2011Q1

REPORT INFORMATION
  Report Type: 
  Country: None (occurrence: None)
  Receive Date: 20110204
  Receipt Date: 20110201
  Transmission Date: 20110831
  Serious: Yes (Other)
  Sender: FDA-Public Use
  Company Number: JP-PFIZER INC-2011023375

PATIENT
  Age: 70 Year
  Sex: Male

DRUGS (1)
  1. HALCION [Suspect]
     Dosage: 0.25 MG/DAY
     Dates: start: 19991101

REACTIONS (5)
  - DYSSTASIA [None]
  - HYPOAESTHESIA [None]
  - TREMOR [None]
  - DIZZINESS [None]
  - GAIT DISTURBANCE [None]
